FAERS Safety Report 17828220 (Version 2)
Quarter: 2020Q2

REPORT INFORMATION
  Report Type: Spontaneous
  Country: JP (occurrence: JP)
  Receive Date: 20200527
  Receipt Date: 20200529
  Transmission Date: 20200714
  Serious: Yes (Other)
  Sender: FDA-Public Use
  Company Number: JP-MYLANLABS-2020M1051802

PATIENT
  Age: 45 Year
  Sex: Female

DRUGS (9)
  1. BRENTUXIMAB VEDOTIN [Suspect]
     Active Substance: BRENTUXIMAB VEDOTIN
     Indication: HODGKIN^S DISEASE MIXED CELLULARITY STAGE III
     Dosage: 1.2 MILLIGRAM/KILOGRAM, RECEIVED ON DAYS 1 AND 15 OF EACH 28-DAY CYCLE; COMPLETED SIX CYCLES WITH CO
     Route: 065
  2. VINBLASTINE [Suspect]
     Active Substance: VINBLASTINE
     Indication: HODGKIN^S DISEASE MIXED CELLULARITY STAGE III
     Dosage: 6 MILLIGRAM/SQ. METER, RECEIVED ON DAYS 1 AND 15 OF EACH 28-DAY CYCLE; COMPLETED SIX CYCLES
     Route: 065
  3. DACARBAZINE. [Suspect]
     Active Substance: DACARBAZINE
     Indication: HODGKIN^S DISEASE
     Dosage: 375 MILLIGRAM/SQ. METER, RECEIVED ON DAYS 1 AND 15 OF EACH 28-DAY CYCLE; COMPLETED SIX CYCLES, RECEI
     Route: 065
  4. ETANERCEPT [Suspect]
     Active Substance: ETANERCEPT
     Indication: RHEUMATOID ARTHRITIS
     Route: 065
  5. GOLIMUMAB [Suspect]
     Active Substance: GOLIMUMAB
     Indication: RHEUMATOID ARTHRITIS
     Route: 065
  6. DOXORUBICIN [Suspect]
     Active Substance: DOXORUBICIN
     Indication: HODGKIN^S DISEASE MIXED CELLULARITY STAGE III
     Dosage: 25 MILLIGRAM/SQ. METER, RECEIVED ON DAYS 1 AND 15 OF EACH 28-DAY CYCLE; COMPLETED SIX CYCLES
     Route: 065
  7. PREDNISOLONE. [Suspect]
     Active Substance: PREDNISOLONE
     Indication: RHEUMATOID ARTHRITIS
     Route: 065
  8. TACROLIMUS. [Suspect]
     Active Substance: TACROLIMUS
     Indication: RHEUMATOID ARTHRITIS
     Route: 065
  9. METHOTREXATE. [Suspect]
     Active Substance: METHOTREXATE
     Indication: RHEUMATOID ARTHRITIS
     Route: 065

REACTIONS (3)
  - Hodgkin^s disease mixed cellularity stage III [Recovered/Resolved]
  - Neutropenia [Unknown]
  - Neuropathy peripheral [Unknown]
